FAERS Safety Report 10211177 (Version 1)
Quarter: 2014Q2

REPORT INFORMATION
  Report Type: Report from Study
  Country: US (occurrence: US)
  Receive Date: 20140602
  Receipt Date: 20140602
  Transmission Date: 20141212
  Serious: No
  Sender: FDA-Public Use
  Company Number: US-ABBVIE-13P-163-1152400-00

PATIENT
  Age: 60 Year
  Sex: Female

DRUGS (6)
  1. MARINOL [Suspect]
     Indication: MALABSORPTION
     Dates: start: 20130715, end: 201308
  2. ALPRAZOLAM [Concomitant]
     Indication: ANXIETY
  3. ASPIRIN [Concomitant]
     Indication: PRODUCT USED FOR UNKNOWN INDICATION
  4. ATORVASTATIN [Concomitant]
     Indication: BLOOD CHOLESTEROL INCREASED
  5. CLONAZEPAM [Concomitant]
     Indication: ANXIETY
  6. ESTRADIOL [Concomitant]
     Indication: MENOPAUSE

REACTIONS (1)
  - Weight decreased [Not Recovered/Not Resolved]
